FAERS Safety Report 20698147 (Version 4)
Quarter: 2022Q4

REPORT INFORMATION
  Report Type: Report from Study
  Country: US (occurrence: US)
  Receive Date: 20220412
  Receipt Date: 20221104
  Transmission Date: 20230113
  Serious: Yes (Hospitalization)
  Sender: FDA-Public Use
  Company Number: US-ABBVIE-22K-163-4353994-00

PATIENT
  Age: 30 Year
  Sex: Male

DRUGS (8)
  1. HUMIRA [Suspect]
     Active Substance: ADALIMUMAB
     Indication: Crohn^s disease
     Dosage: CITRATE FREE?FORM STRENGTH: 40 MILLIGRAM?DAY 1, ONCE
     Route: 058
     Dates: start: 20210610, end: 20210610
  2. HUMIRA [Suspect]
     Active Substance: ADALIMUMAB
     Dosage: CITRATE FREE PEN
     Route: 058
  3. HUMIRA [Suspect]
     Active Substance: ADALIMUMAB
     Dosage: DAY 1, ONCE
     Route: 058
     Dates: start: 20210610, end: 20210610
  4. HUMIRA [Suspect]
     Active Substance: ADALIMUMAB
     Dosage: FORM STRENGTH: 40 MILLIGRAM
     Route: 058
  5. HUMIRA [Suspect]
     Active Substance: ADALIMUMAB
     Dosage: DAY 15, ONCE?FORM STRENGTH: 40 MILLIGRAM
     Route: 058
     Dates: start: 20210624
  6. HUMIRA [Suspect]
     Active Substance: ADALIMUMAB
     Dosage: DAY 29?FORM STRENGTH: 40 MILLIGRAM
     Route: 058
     Dates: start: 20210708
  7. HUMIRA [Suspect]
     Active Substance: ADALIMUMAB
     Dosage: FORM STRENGTH: 40 MILLIGRAM
     Route: 058
  8. PFIZER-BIONTECH COVID-19 VACCINE [Concomitant]
     Active Substance: TOZINAMERAN
     Indication: COVID-19 immunisation
     Dosage: COVID VACCINE DOSE, FREQUENCY: ONCE
     Route: 014

REACTIONS (23)
  - Small intestinal obstruction [Unknown]
  - Vomiting [Recovered/Resolved]
  - Pain [Recovered/Resolved]
  - Asthenia [Unknown]
  - Fear [Unknown]
  - Fatigue [Unknown]
  - Gastrointestinal sounds abnormal [Unknown]
  - Loss of personal independence in daily activities [Unknown]
  - Malaise [Unknown]
  - Off label use [Unknown]
  - Fatigue [Unknown]
  - Insomnia [Unknown]
  - Abdominal distension [Unknown]
  - Anxiety [Unknown]
  - Depressed mood [Unknown]
  - Flatulence [Unknown]
  - Inflammation [Unknown]
  - Drug ineffective [Unknown]
  - Inflammatory bowel disease [Unknown]
  - Drug specific antibody present [Unknown]
  - Arthralgia [Unknown]
  - Crohn^s disease [Recovering/Resolving]
  - Diarrhoea [Unknown]

NARRATIVE: CASE EVENT DATE: 20220301
